FAERS Safety Report 10592674 (Version 1)
Quarter: 2014Q4

REPORT INFORMATION
  Report Type: Spontaneous
  Country: None (occurrence: None)
  Receive Date: 20141117
  Receipt Date: 20141117
  Transmission Date: 20150529
  Serious: Yes (Other)
  Sender: FDA-Public Use
  Company Number: MU-SEPTODONT-201402176

PATIENT

DRUGS (1)
  1. ARTICAINE [Suspect]
     Active Substance: ARTICAINE
     Indication: LOCAL ANAESTHESIA
     Dosage: DENTAL
     Route: 004

REACTIONS (4)
  - Hypersensitivity [None]
  - Local swelling [None]
  - Emphysema [None]
  - Angioedema [None]
